FAERS Safety Report 9758320 (Version 1)
Quarter: 2013Q4

REPORT INFORMATION
  Report Type: Spontaneous
  Country: US (occurrence: US)
  Receive Date: 20131216
  Receipt Date: 20131216
  Transmission Date: 20140711
  Serious: No
  Sender: FDA-Public Use
  Company Number: US-ENDO PHARMACEUTICALS INC.-BUTA20130011

PATIENT
  Sex: Female

DRUGS (2)
  1. BUTALBITAL/ACETAMINOPHEN/CAFFEINE TABLETS [Suspect]
     Indication: MIGRAINE
     Dosage: 50MG/325MG/400MG
     Route: 048
     Dates: start: 2013
  2. BUTALBITAL/ACETAMINOPHEN/CAFFEINE TABLETS [Concomitant]
     Indication: MIGRAINE
     Dosage: 50MG/500MG/40MG
     Route: 048
     Dates: end: 2013

REACTIONS (1)
  - Drug ineffective [Unknown]
